FAERS Safety Report 9473027 (Version 2)
Quarter: 2013Q3

REPORT INFORMATION
  Report Type: Spontaneous
  Country: US (occurrence: US)
  Receive Date: 20130823
  Receipt Date: 20130823
  Transmission Date: 20140515
  Serious: No
  Sender: FDA-Public Use
  Company Number: US-BRISTOL-MYERS SQUIBB COMPANY-17348079

PATIENT
  Age: 48 Year
  Sex: Male
  Weight: 88.43 kg

DRUGS (3)
  1. SPRYCEL (CML) TABS 100 MG [Suspect]
     Indication: CHRONIC MYELOID LEUKAEMIA
     Dosage: TABS
     Route: 048
  2. LIPITOR [Concomitant]
     Dosage: 20MG TAB
  3. CENTRUM [Concomitant]

REACTIONS (1)
  - Fatigue [Unknown]
